FAERS Safety Report 24966217 (Version 1)
Quarter: 2025Q1

REPORT INFORMATION
  Report Type: Spontaneous
  Country: US (occurrence: None)
  Receive Date: 20250212
  Receipt Date: 20250212
  Transmission Date: 20250409
  Serious: No
  Sender: FDA-CTU
  Company Number: None

PATIENT
  Age: 67 Year
  Sex: Male

DRUGS (1)
  1. APIXABAN [Suspect]
     Active Substance: APIXABAN
     Indication: Deep vein thrombosis
     Dosage: FREQUENCY : TWICE A DAY;?
     Route: 048

REACTIONS (12)
  - Normocytic anaemia [None]
  - Post procedural haemorrhage [None]
  - Transfusion [None]
  - Epistaxis [None]
  - Cough [None]
  - Hypertension [None]
  - Tachycardia [None]
  - Endotracheal intubation complication [None]
  - Post procedural complication [None]
  - Arterial haemorrhage [None]
  - Therapy interrupted [None]
  - Procedural failure [None]

NARRATIVE: CASE EVENT DATE: 20250128
